FAERS Safety Report 4640634-2 (Version None)
Quarter: 2005Q2

REPORT INFORMATION
  Report Type: 
  Country: None (occurrence: None)
  Receive Date: 20050419
  Receipt Date: 20050406
  Transmission Date: 20051028
  Serious: Yes (Life-Threatening, Hospitalization)
  Sender: FDA-Public Use
  Company Number: 2005055771

PATIENT
  Age: 86 Year
  Sex: Female

DRUGS (5)
  1. CELEBREX [Suspect]
     Indication: ILL-DEFINED DISORDER
  2. FOSINOPRIL SODIUM [Suspect]
     Indication: CARDIAC FAILURE CONGESTIVE
     Dosage: 40 MG (40 MG, 1 IN 1 D)
     Dates: end: 20010210
  3. SPIRONOLACTONE [Suspect]
     Indication: CARDIAC FAILURE CONGESTIVE
     Dosage: 25 MG (25 MG, 1 IN 1 D)
     Dates: end: 20010210
  4. FUROSEMIDE [Suspect]
     Indication: CARDIAC FAILURE CONGESTIVE
     Dosage: 80 MG (80 MG, 1 IN 1 D)
     Dates: end: 20010210
  5. POTASSIUM CHLORIDE [Suspect]
     Indication: ALKALOSIS
     Dosage: 1 IN 1 D, ORAL
     Route: 048
     Dates: end: 20010210

REACTIONS (2)
  - HYPERKALAEMIA [None]
  - RENAL FAILURE ACUTE [None]
